FAERS Safety Report 4634119-7 (Version None)
Quarter: 2005Q2

REPORT INFORMATION
  Report Type: 
  Country: None (occurrence: None)
  Receive Date: 20050413
  Receipt Date: 20050331
  Transmission Date: 20051028
  Serious: Yes (Other)
  Sender: FDA-Public Use
  Company Number: 200501041

PATIENT
  Age: 33 Year
  Sex: Male

DRUGS (5)
  1. TAGAMET [Suspect]
     Indication: NASOPHARYNGITIS
     Dosage: 600MG UNKNOWN
     Route: 065
     Dates: start: 20050223, end: 20050224
  2. OSELTAMIVIR PHOSPHATE [Concomitant]
     Indication: ILL-DEFINED DISORDER
     Route: 065
     Dates: start: 20050221, end: 20050223
  3. PARACETAMOL [Concomitant]
     Indication: ILL-DEFINED DISORDER
     Route: 065
     Dates: start: 20050221, end: 20050223
  4. LOXOPROFEN SODIUM [Concomitant]
     Indication: ILL-DEFINED DISORDER
     Route: 065
     Dates: start: 20050223, end: 20050224
  5. CETIRIZINE HCL [Concomitant]
     Indication: ILL-DEFINED DISORDER
     Route: 065
     Dates: start: 20050221, end: 20050224

REACTIONS (3)
  - ONYCHOMADESIS [None]
  - STEVENS-JOHNSON SYNDROME [None]
  - VISUAL ACUITY REDUCED [None]
